FAERS Safety Report 21458894 (Version 1)
Quarter: 2022Q4

REPORT INFORMATION
  Report Type: Spontaneous
  Country: US (occurrence: None)
  Receive Date: 20221013
  Receipt Date: 20221013
  Transmission Date: 20230112
  Serious: No
  Sender: FDA-Public Use
  Company Number: None

PATIENT
  Sex: 0

DRUGS (1)
  1. AMBRISENTAN [Suspect]
     Active Substance: AMBRISENTAN

REACTIONS (6)
  - Dizziness [None]
  - Gait disturbance [None]
  - Dyspnoea [None]
  - Heart rate [None]
  - Cardiac discomfort [None]
  - Product availability issue [None]
